FAERS Safety Report 17532503 (Version 1)
Quarter: 2020Q1

REPORT INFORMATION
  Report Type: Report from Study
  Country: CO (occurrence: CO)
  Receive Date: 20200312
  Receipt Date: 20200312
  Transmission Date: 20200409
  Serious: Yes (Hospitalization)
  Sender: FDA-Public Use
  Company Number: CO-ROCHE-2468708

PATIENT
  Sex: Female

DRUGS (3)
  1. AVASTIN [Suspect]
     Active Substance: BEVACIZUMAB
     Indication: PRODUCT USED FOR UNKNOWN INDICATION
     Route: 065
  2. IRINOTECAN [Concomitant]
     Active Substance: IRINOTECAN
     Route: 065
  3. XELODA [Suspect]
     Active Substance: CAPECITABINE
     Indication: PRODUCT USED FOR UNKNOWN INDICATION
     Route: 048

REACTIONS (12)
  - Oral discomfort [Unknown]
  - Dyspepsia [Unknown]
  - Skin burning sensation [Unknown]
  - Vomiting [Unknown]
  - Renal failure [Unknown]
  - Laboratory test abnormal [Unknown]
  - Skin discolouration [Unknown]
  - Burning sensation [Unknown]
  - Dehydration [Unknown]
  - Poisoning [Unknown]
  - Alopecia [Unknown]
  - Hepatic failure [Unknown]
